FAERS Safety Report 12631241 (Version 2)
Quarter: 2016Q3

REPORT INFORMATION
  Report Type: Spontaneous
  Country: US (occurrence: US)
  Receive Date: 20160808
  Receipt Date: 20160808
  Transmission Date: 20161109
  Serious: No
  Sender: FDA-Public Use
  Company Number: US-BEH-2015052989

PATIENT
  Sex: Male
  Weight: 70.8 kg

DRUGS (25)
  1. ACETAMINOPHEN. [Concomitant]
     Active Substance: ACETAMINOPHEN
  2. TEMAZEPAM. [Concomitant]
     Active Substance: TEMAZEPAM
  3. HIZENTRA [Suspect]
     Active Substance: HUMAN IMMUNOGLOBULIN G
     Indication: IMMUNODEFICIENCY COMMON VARIABLE
     Dosage: 50 ML VIAL
     Route: 058
  4. CROMOLYN [Concomitant]
     Active Substance: CROMOLYN
  5. MULTIVITAMIN [Concomitant]
     Active Substance: VITAMINS
  6. PERCOCET [Concomitant]
     Active Substance: ACETAMINOPHEN\OXYCODONE HYDROCHLORIDE
  7. SIMVASTATIN. [Concomitant]
     Active Substance: SIMVASTATIN
  8. VENTOLIN [Concomitant]
     Active Substance: ALBUTEROL SULFATE
  9. DOCUSATE [Concomitant]
     Active Substance: DOCUSATE
  10. GEMFIBROZIL. [Concomitant]
     Active Substance: GEMFIBROZIL
  11. ZYRTEC [Concomitant]
     Active Substance: CETIRIZINE HYDROCHLORIDE
  12. FISH OIL [Concomitant]
     Active Substance: FISH OIL
  13. DIPHENHYDRAMINE. [Concomitant]
     Active Substance: DIPHENHYDRAMINE
     Indication: ANAPHYLACTIC REACTION
  14. EPIPEN [Concomitant]
     Active Substance: EPINEPHRINE
     Indication: ANAPHYLACTIC REACTION
  15. MORPHINE [Concomitant]
     Active Substance: MORPHINE
  16. ADVAIR HFA [Concomitant]
     Active Substance: FLUTICASONE PROPIONATE\SALMETEROL XINAFOATE
  17. KETOTIFEN [Concomitant]
     Active Substance: KETOTIFEN
  18. SPIRIVA [Concomitant]
     Active Substance: TIOTROPIUM BROMIDE MONOHYDRATE
  19. CALCIUM + D [Concomitant]
     Active Substance: CALCIUM\VITAMIN D
  20. HIZENTRA [Suspect]
     Active Substance: HUMAN IMMUNOGLOBULIN G
     Dosage: 10 GM 50 ML VIAL
     Route: 058
  21. SOMA [Concomitant]
     Active Substance: CARISOPRODOL
  22. XOLAIR [Concomitant]
     Active Substance: OMALIZUMAB
  23. COLACE [Concomitant]
     Active Substance: DOCUSATE SODIUM
  24. LISINOPRIL. [Concomitant]
     Active Substance: LISINOPRIL
  25. OMEPRAZOLE. [Concomitant]
     Active Substance: OMEPRAZOLE

REACTIONS (5)
  - Fatigue [Unknown]
  - Fatigue [Recovered/Resolved]
  - Pain [Recovered/Resolved]
  - Headache [Recovered/Resolved]
  - Nausea [Recovered/Resolved]
